FAERS Safety Report 4860770-5 (Version None)
Quarter: 2005Q4

REPORT INFORMATION
  Report Type: 
  Country: None (occurrence: None)
  Receive Date: 20051216
  Receipt Date: 20051201
  Transmission Date: 20060501
  Serious: Yes (Disabling)
  Sender: FDA-Public Use
  Company Number: 12964

PATIENT
  Age: 65 Year
  Sex: Male
  Weight: 56.6996 kg

DRUGS (15)
  1. PAMIDRONIC ACID [Suspect]
     Indication: NEUROPATHIC ARTHROPATHY
  2. ATENOLOL [Concomitant]
  3. CLOPIDOGREL [Concomitant]
  4. FELODIPINE [Concomitant]
  5. GABAPENTIN [Concomitant]
  6. LOPERAMIDE HYDROCHLORIDE [Concomitant]
  7. METFORMIN HYDROCHLORIDE [Concomitant]
  8. MIXTARD                     /00634701/ [Concomitant]
  9. NICORANDIL [Concomitant]
  10. OMEPRAZOLE [Concomitant]
  11. PERINDOPRIL [Concomitant]
  12. SIMVASTATIN [Concomitant]
  13. THIAMINE HCL [Concomitant]
  14. VITAMIN B COMPLEX CAP [Concomitant]
  15. CODEINE PHOSPHATE [Concomitant]

REACTIONS (2)
  - FATIGUE [None]
  - INFLUENZA LIKE ILLNESS [None]
